FAERS Safety Report 10563088 (Version 1)
Quarter: 2014Q4

REPORT INFORMATION
  Report Type: Spontaneous
  Country: US (occurrence: None)
  Receive Date: 20141103
  Receipt Date: 20141103
  Transmission Date: 20150529
  Serious: Yes (Other)
  Sender: FDA-Public Use
  Company Number: None

PATIENT
  Age: 31 Year
  Sex: Female
  Weight: 61.24 kg

DRUGS (1)
  1. NEXPLANON [Suspect]
     Active Substance: ETONOGESTREL
     Dosage: 1 IMPLANT, EVERY 3 YEARS, INTO THE MUSCLE

REACTIONS (4)
  - Flatulence [None]
  - Abdominal distension [None]
  - Paranoia [None]
  - Amenorrhoea [None]

NARRATIVE: CASE EVENT DATE: 20141102
